FAERS Safety Report 5093534-0 (Version None)
Quarter: 2006Q3

REPORT INFORMATION
  Report Type: 
  Country: None (occurrence: None)
  Receive Date: 20060829
  Receipt Date: 20060816
  Transmission Date: 20061208
  Serious: Yes (Other)
  Sender: FDA-Public Use
  Company Number: 2006100262

PATIENT
  Age: 47 Year
  Sex: Female

DRUGS (3)
  1. LYRICA [Suspect]
     Indication: FIBROMYALGIA
     Dosage: 300 MG (150 MG,2 IN 1 D)
     Dates: start: 20060601
  2. ALL OTHER THERAPEUTIC PRODUCTS [Concomitant]
  3. CLONAZEPAM [Concomitant]

REACTIONS (7)
  - CLUMSINESS [None]
  - FEELING ABNORMAL [None]
  - INTESTINAL OBSTRUCTION [None]
  - PHARMACEUTICAL PRODUCT COMPLAINT [None]
  - VISION BLURRED [None]
  - VISUAL ACUITY REDUCED [None]
  - WEIGHT INCREASED [None]
